FAERS Safety Report 6216764-0 (Version None)
Quarter: 2009Q2

REPORT INFORMATION
  Report Type: 
  Country: None (occurrence: None)
  Receive Date: 20090605
  Receipt Date: 20090529
  Transmission Date: 20091009
  Serious: Yes (Hospitalization)
  Sender: FDA-Public Use
  Company Number: US-CELGENEUS-163-20785-09060014

PATIENT
  Sex: Female

DRUGS (2)
  1. THALOMID [Suspect]
     Indication: ENTERITIS
     Route: 048
     Dates: start: 20090201
  2. THALOMID [Suspect]
     Route: 048
     Dates: start: 20090401

REACTIONS (1)
  - PNEUMONIA ASPIRATION [None]
